FAERS Safety Report 5287554-0 (Version None)
Quarter: 2007Q1

REPORT INFORMATION
  Report Type: 
  Country: None (occurrence: None)
  Receive Date: 20070126
  Receipt Date: 20061109
  Transmission Date: 20070707
  Serious: No
  Sender: FDA-Public Use
  Company Number: 2006CT000983

PATIENT
  Age: 71 Year
  Sex: Female

DRUGS (6)
  1. VENTAVIS [Suspect]
     Indication: PULMONARY HYPERTENSION
     Dosage: 5 UG;6TO9X/DAY;INH
     Route: 055
     Dates: start: 20061030, end: 20061107
  2. IRON [Concomitant]
  3. VITAMIN CAP [Concomitant]
  4. PEPCID [Concomitant]
  5. PLAVIX [Concomitant]
  6. SIMVASTATIN [Concomitant]

REACTIONS (6)
  - ASTHENIA [None]
  - CHEST PAIN [None]
  - DYSPNOEA [None]
  - HYPOTENSION [None]
  - MUSCULAR WEAKNESS [None]
  - TACHYCARDIA [None]
